FAERS Safety Report 4444135-6 (Version None)
Quarter: 2004Q3

REPORT INFORMATION
  Report Type: 
  Country: None (occurrence: None)
  Receive Date: 20040812
  Receipt Date: 20030701
  Transmission Date: 20050211
  Serious: Yes (Hospitalization, Other)
  Sender: FDA-Public Use
  Company Number: US_980706343

PATIENT
  Age: 45 Year
  Sex: Female
  Weight: 66 kg

DRUGS (6)
  1. HUMULIN R [Suspect]
     Indication: DIABETES MELLITUS
     Dosage: 18 U/DAY
     Dates: start: 19830101
  2. HUMULIN N [Suspect]
     Indication: DIABETES MELLITUS
     Dosage: 43 U/2 DAY
     Dates: start: 19830101
  3. LENTE ILETIN (BEEF-PORK) INSULIN ZINC [Suspect]
     Indication: DIABETES MELLITUS
     Dosage: 64 U/DAY
     Dates: start: 19980401
  4. INSULIN BEEF/PORK REGULAR INSULIN (INSULIN, ANIMAL) [Suspect]
     Indication: DIABETES MELLITUS
     Dosage: 17 U/DAY
     Dates: start: 19980401
  5. METFORMIN HCL [Concomitant]
  6. BLOOD THINNER [Concomitant]

REACTIONS (7)
  - BLOOD GLUCOSE INCREASED [None]
  - CHEST PAIN [None]
  - GANGRENE [None]
  - HYPERHIDROSIS [None]
  - OEDEMA PERIPHERAL [None]
  - STRESS SYMPTOMS [None]
  - VISUAL DISTURBANCE [None]
